FAERS Safety Report 12673678 (Version 1)
Quarter: 2016Q3

REPORT INFORMATION
  Report Type: Report from Study
  Country: US (occurrence: US)
  Receive Date: 20160822
  Receipt Date: 20160822
  Transmission Date: 20161109
  Serious: Yes (Hospitalization)
  Sender: FDA-Public Use
  Company Number: US-BAYER-2016-091629

PATIENT
  Age: 60 Year
  Sex: Female

DRUGS (10)
  1. STIVARGA [Suspect]
     Active Substance: REGORAFENIB
     Indication: COLON CANCER
     Dosage: 160 MG, QD FOR 21 DAYS
     Route: 048
     Dates: start: 20160425, end: 20160729
  2. TRIAMCINOLONE [Concomitant]
     Active Substance: TRIAMCINOLONE
  3. DULOXETINE. [Concomitant]
     Active Substance: DULOXETINE
  4. FLAGYL [Concomitant]
     Active Substance: METRONIDAZOLE\METRONIDAZOLE HYDROCHLORIDE
  5. PANTOPRAZOLE [Concomitant]
     Active Substance: PANTOPRAZOLE SODIUM
  6. ACETAMINOPHEN W/OXYCODONE [Concomitant]
     Active Substance: ACETAMINOPHEN\OXYCODONE HYDROCHLORIDE
  7. ZOFRAN [Concomitant]
     Active Substance: ONDANSETRON HYDROCHLORIDE
  8. OXYCODONE [Concomitant]
     Active Substance: OXYCODONE
  9. GABAPENTIN. [Concomitant]
     Active Substance: GABAPENTIN
  10. SENOKOT [Concomitant]
     Active Substance: SENNOSIDES

REACTIONS (12)
  - Malaise [Unknown]
  - Dizziness [Unknown]
  - Dry mouth [Unknown]
  - Stomatitis [Unknown]
  - Blister [Unknown]
  - Vomiting [Unknown]
  - Nausea [Unknown]
  - Drug ineffective [None]
  - Constipation [Unknown]
  - Skin lesion [Unknown]
  - Headache [Unknown]
  - Adverse event [None]

NARRATIVE: CASE EVENT DATE: 2016
